FAERS Safety Report 6655128-2 (Version None)
Quarter: 2010Q1

REPORT INFORMATION
  Report Type: 
  Country: None (occurrence: None)
  Receive Date: 20100329
  Receipt Date: 20100318
  Transmission Date: 20100710
  Serious: Yes (Other)
  Sender: FDA-Public Use
  Company Number: JP-NOVOPROD-305088

PATIENT
  Sex: Female
  Weight: 18 kg

DRUGS (8)
  1. NORDITROPIN NORDIFLEX [Suspect]
     Indication: CHONDRODYSTROPHY
     Dosage: 0.35MGX6/ WEEK.
     Route: 058
     Dates: start: 20071203, end: 20080129
  2. NORDITROPIN NORDIFLEX [Suspect]
     Dosage: 0.7MGX6/WEEK
     Route: 058
     Dates: start: 20080129, end: 20080708
  3. NORDITROPIN NORDIFLEX [Suspect]
     Dosage: 0.75MGX6/WEEK
     Route: 058
     Dates: start: 20080708, end: 20081007
  4. NORDITROPIN NORDIFLEX [Suspect]
     Dosage: 0.8 MG/X6/WEEK
     Route: 058
     Dates: start: 20081007, end: 20090106
  5. NORDITROPIN NORDIFLEX [Suspect]
     Dosage: 0.85MGX6/WEEK
     Dates: start: 20090106, end: 20090602
  6. NORDITROPIN NORDIFLEX [Suspect]
     Dosage: 0.9 MGX6/WEEK
     Route: 058
     Dates: start: 20090602, end: 20090901
  7. NORDITROPIN NORDIFLEX [Suspect]
     Dosage: 0.95 MGX6/WEEK
     Route: 058
     Dates: start: 20090901, end: 20100304
  8. NORDITROPIN NORDIFLEX [Suspect]
     Dosage: 1.05MGX6/WEEK
     Dates: start: 20100304

REACTIONS (2)
  - CONDITION AGGRAVATED [None]
  - SLEEP APNOEA SYNDROME [None]
